FAERS Safety Report 10424914 (Version 1)
Quarter: 2014Q3

REPORT INFORMATION
  Report Type: Spontaneous
  Country: US (occurrence: None)
  Receive Date: 20140722
  Receipt Date: 20140722
  Transmission Date: 20150326
  Serious: No
  Sender: FDA-Public Use
  Company Number: 163-10004-14050035

PATIENT
  Age: 28 Year
  Sex: Female
  Weight: 54.5 kg

DRUGS (8)
  1. OTEZLA [Suspect]
     Active Substance: APREMILAST
     Indication: PSORIATIC ARTHROPATHY
     Dosage: 60 MG, 2 IN 1 D, PO?
     Route: 048
     Dates: start: 20140410
  2. STELARA (USTEKINUMAB) (UNKNOWN) [Concomitant]
  3. CELEBREX [Concomitant]
     Active Substance: CELECOXIB
  4. PRENATAL VITAMINS (PRENATAL VITAMINS) (UNKNOWN) [Concomitant]
  5. ORTHO TRI-CYCLEN (CILEST) (UNKNOWN) [Concomitant]
  6. NAPROXEN (NAPROXEN) (UNKNOWN) [Concomitant]
  7. IMITREX (UNKNOWN) [Concomitant]
  8. NEURONTIN (GABAPENTIN) (UNKNOWN) [Concomitant]

REACTIONS (1)
  - Headache [None]

NARRATIVE: CASE EVENT DATE: 20140410
